FAERS Safety Report 20652747 (Version 2)
Quarter: 2022Q2

REPORT INFORMATION
  Report Type: Report from Study
  Country: AU (occurrence: US)
  Receive Date: 20220330
  Receipt Date: 20220408
  Transmission Date: 20220721
  Serious: Yes (Hospitalization)
  Sender: FDA-Public Use
  Company Number: AU-KARYOPHARM-2022KPT000364

PATIENT
  Age: 67 Year
  Sex: Female
  Weight: 93.7 kg

DRUGS (25)
  1. SELINEXOR [Suspect]
     Active Substance: SELINEXOR
     Indication: Plasma cell myeloma
     Dosage: 40 MG, WEEKLY
     Route: 048
     Dates: start: 20220121
  2. LENALIDOMIDE [Suspect]
     Active Substance: LENALIDOMIDE
     Indication: Plasma cell myeloma
     Dosage: 10 MG, ONCE DAILY ON DAYS 1 TO 21 OF A 28 DAY CYCLE
     Route: 048
     Dates: start: 20220121
  3. VALACYCLOVIR HYDROCHLORIDE [Concomitant]
     Active Substance: VALACYCLOVIR HYDROCHLORIDE
     Indication: Antiviral prophylaxis
     Dosage: 500 MG, QD
     Route: 048
     Dates: start: 20210713
  4. METOPROLOL [Concomitant]
     Active Substance: METOPROLOL
     Indication: Hypertension
     Dosage: 25 MG, BID
     Route: 048
     Dates: start: 20210511
  5. AMLODIPINE\TELMISARTAN [Concomitant]
     Active Substance: AMLODIPINE\TELMISARTAN
     Indication: Hypertension
     Dosage: 80-5 MG, QD
     Route: 048
     Dates: start: 2017
  6. PANTOPRAZOLE [Concomitant]
     Active Substance: PANTOPRAZOLE
     Indication: Gastrooesophageal reflux prophylaxis
     Dosage: 40 MG, QD
     Route: 048
     Dates: start: 20210430
  7. ASPIRIN [Concomitant]
     Active Substance: ASPIRIN
     Indication: Thrombosis prophylaxis
     Dosage: 100 MG, QD
     Route: 048
     Dates: start: 20210713
  8. ALLOPURINOL [Concomitant]
     Active Substance: ALLOPURINOL
     Indication: Gout
     Dosage: 200 MG, QD
     Route: 048
     Dates: start: 20220107, end: 20220222
  9. ONDANSETRON [Concomitant]
     Active Substance: ONDANSETRON
     Indication: Prophylaxis of nausea and vomiting
     Dosage: 8 MG, PRN
     Route: 048
     Dates: start: 20220121
  10. MAGNESIUM ASPARTATE [Concomitant]
     Active Substance: MAGNESIUM ASPARTATE
     Indication: Supplementation therapy
     Dosage: 2 TABLETS, QD
     Route: 048
     Dates: start: 20210511
  11. MELATONIN [Concomitant]
     Active Substance: MELATONIN
     Indication: Plasma cell myeloma
     Dosage: 2 MG, QD
     Route: 048
     Dates: start: 20220308
  12. ESCITALOPRAM [Concomitant]
     Active Substance: ESCITALOPRAM OXALATE
     Indication: Plasma cell myeloma
     Dosage: 10 MG, QD
     Route: 048
     Dates: start: 20211201, end: 20220307
  13. ESCITALOPRAM [Concomitant]
     Active Substance: ESCITALOPRAM OXALATE
     Dosage: 20 MG, QD
     Route: 048
     Dates: start: 20220308
  14. CALCIUM CARBONATE [Concomitant]
     Active Substance: CALCIUM CARBONATE
     Indication: Mineral supplementation
     Dosage: 600 MG, PRN
     Route: 048
     Dates: start: 20210420
  15. CALCIUM CARBONATE\CHOLECALCIFEROL [Concomitant]
     Active Substance: CALCIUM CARBONATE\CHOLECALCIFEROL
     Indication: Vitamin supplementation
     Dosage: 1 DOSAGE FORM, QD
     Route: 048
     Dates: start: 20210420
  16. ACETAMINOPHEN [Concomitant]
     Active Substance: ACETAMINOPHEN
     Indication: Pericarditis
     Dosage: 1 G, SINGLE
     Route: 048
     Dates: start: 20220316, end: 20220316
  17. ACETAMINOPHEN [Concomitant]
     Active Substance: ACETAMINOPHEN
     Indication: Febrile neutropenia
     Dosage: 1 G, SINGLE
     Route: 048
     Dates: start: 20220322, end: 20220322
  18. OXYCODONE [Concomitant]
     Active Substance: OXYCODONE
     Indication: Pericarditis
     Dosage: 5 MG, SINGLE
     Route: 048
     Dates: start: 20220316
  19. COLCHICINE [Concomitant]
     Active Substance: COLCHICINE
     Indication: Pericarditis
     Dosage: 500 UG, BID
     Route: 048
     Dates: start: 20220316, end: 20220322
  20. IBUPROFEN [Concomitant]
     Active Substance: IBUPROFEN
     Indication: Pericarditis
     Dosage: 600 MG, TID
     Route: 048
     Dates: start: 20220316, end: 20220317
  21. IBUPROFEN [Concomitant]
     Active Substance: IBUPROFEN
     Dosage: 200 MG, TID
     Route: 048
     Dates: start: 20220318, end: 20220322
  22. CEFTRIAXONE [Concomitant]
     Active Substance: CEFTRIAXONE
     Indication: Febrile neutropenia
     Dosage: 2 G, SINGLE
     Route: 042
     Dates: start: 20220322, end: 20220322
  23. AZITHROMYCIN [Concomitant]
     Active Substance: AZITHROMYCIN
     Indication: Febrile neutropenia
     Dosage: 500 MG, QD
     Route: 042
     Dates: start: 20220322, end: 20220324
  24. PIPERACILLIN SODIUM\TAZOBACTAM SODIUM [Concomitant]
     Active Substance: PIPERACILLIN SODIUM\TAZOBACTAM SODIUM
     Indication: Febrile neutropenia
     Dosage: 4.5 G, PRN
     Route: 042
     Dates: start: 20220322, end: 20220324
  25. COMPOUND SODIUM LACTATE [CALCIUM CHLORIDE DIHYDRATE;POTASSIUM CHLORIDE [Concomitant]
     Indication: Febrile neutropenia
     Dosage: 1 L, SINGLE
     Route: 042
     Dates: start: 20220322, end: 20220322

REACTIONS (1)
  - Febrile neutropenia [Recovered/Resolved]

NARRATIVE: CASE EVENT DATE: 20220323
